FAERS Safety Report 8222871-3 (Version None)
Quarter: 2012Q1

REPORT INFORMATION
  Report Type: 
  Country: None (occurrence: None)
  Receive Date: 20120320
  Receipt Date: 20120315
  Transmission Date: 20120608
  Serious: Yes (Life-Threatening, Hospitalization, Other)
  Sender: FDA-Public Use
  Company Number: GB-PFIZER INC-2012068215

PATIENT
  Age: 64 Year
  Sex: Male
  Weight: 75 kg

DRUGS (9)
  1. ZOLPIDEM [Concomitant]
  2. DOMPERIDONE [Concomitant]
  3. ALBUTEROL [Concomitant]
  4. TACROLIMUS [Concomitant]
     Dates: end: 20120110
  5. TRAMADOL HCL [Concomitant]
  6. SIROLIMUS [Suspect]
     Indication: LIVER TRANSPLANT
     Dosage: 1 MG, UNK
     Route: 048
     Dates: start: 20120110, end: 20120222
  7. FLUTICASONE PROPIONATE/SALMETEROL [Concomitant]
  8. PHYLLOCONTIN [Concomitant]
  9. MYCOPHENOLATE MOFETIL [Concomitant]
     Dosage: UNK
     Dates: end: 20120110

REACTIONS (6)
  - PNEUMONITIS [None]
  - NON-CARDIOGENIC PULMONARY OEDEMA [None]
  - CHEST X-RAY ABNORMAL [None]
  - DYSPNOEA [None]
  - COUGH [None]
  - RESPIRATORY FAILURE [None]
